FAERS Safety Report 9296074 (Version 1)
Quarter: 2013Q2

REPORT INFORMATION
  Report Type: Report from Study
  Country: US (occurrence: US)
  Receive Date: 20130517
  Receipt Date: 20130517
  Transmission Date: 20140414
  Serious: Yes (Other)
  Sender: FDA-Public Use
  Company Number: US-JNJFOC-20130507272

PATIENT
  Sex: Female

DRUGS (1)
  1. REMICADE [Suspect]
     Indication: ARTHRITIS
     Route: 042
     Dates: start: 201305

REACTIONS (5)
  - Sensation of heaviness [Not Recovered/Not Resolved]
  - Paraesthesia [Not Recovered/Not Resolved]
  - Myalgia [Not Recovered/Not Resolved]
  - Fatigue [Not Recovered/Not Resolved]
  - Muscle spasms [Not Recovered/Not Resolved]
